FAERS Safety Report 7540272-8 (Version None)
Quarter: 2011Q2

REPORT INFORMATION
  Report Type: 
  Country: None (occurrence: None)
  Receive Date: 20110610
  Receipt Date: 20110529
  Transmission Date: 20111010
  Serious: Yes (Hospitalization, Other)
  Sender: FDA-Public Use
  Company Number: PHHY2011IT47383

PATIENT
  Age: 32 Year

DRUGS (5)
  1. NYSTATIN [Concomitant]
     Indication: FUNGAL INFECTION
  2. STEROIDS NOS [Concomitant]
  3. ASPIRIN [Concomitant]
  4. MYCOPHENOLATE MEFETIL [Suspect]
     Indication: IMMUNOSUPPRESSION
  5. TACROLIMUS [Concomitant]

REACTIONS (37)
  - CARDIOMEGALY [None]
  - DYSURIA [None]
  - SIMPLEX VIRUS TEST POSITIVE [None]
  - OEDEMA MUCOSAL [None]
  - PULMONARY HYPERTENSION [None]
  - MYALGIA [None]
  - BACTERIAL INFECTION [None]
  - EPSTEIN-BARR VIRUS INFECTION [None]
  - ARTERITIS [None]
  - BRONCHOPNEUMONIA [None]
  - DYSPNOEA [None]
  - ASTHENIA [None]
  - LYMPHOCYTIC INFILTRATION [None]
  - PLEURITIC PAIN [None]
  - ANISOCYTOSIS [None]
  - ANAEMIA [None]
  - URINARY TRACT INFECTION BACTERIAL [None]
  - CYTOMEGALOVIRUS TEST POSITIVE [None]
  - BLISTER [None]
  - FIBRINOUS BRONCHITIS [None]
  - INCREASED BRONCHIAL SECRETION [None]
  - OEDEMA PERIPHERAL [None]
  - BLOOD CREATININE INCREASED [None]
  - BLOOD UREA INCREASED [None]
  - WEIGHT INCREASED [None]
  - NODULE [None]
  - RESPIRATORY DISORDER [None]
  - CARDIAC DISORDER [None]
  - ERYTHEMA [None]
  - PYREXIA [None]
  - PLEURAL EFFUSION [None]
  - PANCYTOPENIA [None]
  - HERPES DERMATITIS [None]
  - COUGH [None]
  - KLEBSIELLA INFECTION [None]
  - RENAL FAILURE ACUTE [None]
  - CHEST PAIN [None]
